FAERS Safety Report 4310894-6 (Version None)
Quarter: 2004Q1

REPORT INFORMATION
  Report Type: 
  Country: None (occurrence: None)
  Receive Date: 20040302
  Receipt Date: 20040219
  Transmission Date: 20041129
  Serious: Yes (Hospitalization)
  Sender: FDA-Public Use
  Company Number: 2004011677

PATIENT
  Age: 18 Month
  Sex: Female

DRUGS (2)
  1. AZITHROMYCIN [Suspect]
     Indication: PNEUMONIA
     Dosage: 70 MG, ORAL
     Route: 048
     Dates: start: 20040207, end: 20040211
  2. SALBUTAMOL SULFATE (SALBUTAMO SULFATE) [Concomitant]

REACTIONS (2)
  - HAEMATEMESIS [None]
  - VOMITING [None]
